FAERS Safety Report 24949872 (Version 1)
Quarter: 2025Q1

REPORT INFORMATION
  Report Type: Spontaneous
  Country: US (occurrence: US)
  Receive Date: 20250210
  Receipt Date: 20250210
  Transmission Date: 20250408
  Serious: No
  Sender: MYLAN
  Company Number: US-MYLANLABS-2025M1010222

PATIENT

DRUGS (1)
  1. LEVOTHYROXINE [Suspect]
     Active Substance: LEVOTHYROXINE
     Indication: Product used for unknown indication
     Route: 065

REACTIONS (6)
  - Goitre [Unknown]
  - Dysphonia [Unknown]
  - Temperature intolerance [Unknown]
  - Alopecia [Unknown]
  - Chest pain [Unknown]
  - Pruritus [Unknown]
